FAERS Safety Report 8310057-3 (Version None)
Quarter: 2012Q2

REPORT INFORMATION
  Report Type: 
  Country: None (occurrence: None)
  Receive Date: 20120425
  Receipt Date: 20120417
  Transmission Date: 20120825
  Serious: Yes (Other)
  Sender: FDA-Public Use
  Company Number: US-UCBSA-055642

PATIENT
  Age: 41 Year
  Sex: Female

DRUGS (4)
  1. CIMZIA [Suspect]
     Dosage: TWO SYRINGES EVERY TWO WEEKS
  2. PREDNISONE [Concomitant]
  3. CIMZIA [Suspect]
     Indication: CROHN'S DISEASE
     Dosage: 200 MG PFS EVERY TWO WEEKS
     Dates: start: 20100211
  4. PREDNISONE [Concomitant]
     Dates: start: 20110222

REACTIONS (8)
  - BLUE TOE SYNDROME [None]
  - RASH [None]
  - POST GASTRIC SURGERY SYNDROME [None]
  - GASTRIC ULCER [None]
  - CONTUSION [None]
  - SKIN INJURY [None]
  - DRUG INEFFECTIVE [None]
  - BUTTERFLY RASH [None]
